FAERS Safety Report 7015248-X (Version None)
Quarter: 2010Q3

REPORT INFORMATION
  Report Type: 
  Country: None (occurrence: None)
  Receive Date: 20100927
  Receipt Date: 20100922
  Transmission Date: 20110219
  Serious: Yes (Death, Life-Threatening, Other)
  Sender: FDA-Public Use
  Company Number: HU-ELI_LILLY_AND_COMPANY-HU201008000756

PATIENT
  Sex: Male
  Weight: 58 kg

DRUGS (17)
  1. NECITUMUMAB (11F8) (LY3012211) [Suspect]
     Indication: NON-SMALL CELL LUNG CANCER
     Dosage: 800 MG, UNK
     Dates: start: 20100618, end: 20100729
  2. PEMETREXED [Suspect]
     Indication: NON-SMALL CELL LUNG CANCER
     Dosage: 611 MG, UNK
     Dates: start: 20100618, end: 20100722
  3. CISPLATIN [Suspect]
     Indication: NON-SMALL CELL LUNG CANCER
     Dosage: 91 MG, UNK
     Dates: start: 20100618, end: 20100722
  4. SERETIDE DISCUS [Concomitant]
     Indication: CHRONIC OBSTRUCTIVE PULMONARY DISEASE
     Dates: start: 20100530
  5. SPIRIVA [Concomitant]
     Indication: CHRONIC OBSTRUCTIVE PULMONARY DISEASE
     Dates: start: 20100530
  6. VENTOLIN [Concomitant]
     Indication: CHRONIC OBSTRUCTIVE PULMONARY DISEASE
     Dates: start: 20100530
  7. DALACIN                            /00166002/ [Concomitant]
     Indication: DERMATITIS ACNEIFORM
     Dates: start: 20100625
  8. ELOCON [Concomitant]
     Indication: DERMATITIS ACNEIFORM
     Dates: start: 20100625
  9. QUAMATEL [Concomitant]
     Indication: PROPHYLAXIS
     Dates: start: 20100630
  10. CLEXANE [Concomitant]
     Indication: PROPHYLAXIS
     Dates: start: 20100630
  11. METOPROLOL TARTRATE [Concomitant]
     Indication: ATRIAL FIBRILLATION
     Dates: start: 20100630
  12. TIAPRIDAL [Concomitant]
     Dosage: UNK, UNK
     Dates: start: 20100705, end: 20100731
  13. POTASSIUM CHLORATE [Concomitant]
     Indication: HYPOKALAEMIA
     Dosage: UNK, UNK
     Dates: start: 20100702, end: 20100728
  14. POTASSIUM CHLORATE [Concomitant]
     Dates: start: 20100801
  15. FUROSEMIDE [Concomitant]
     Indication: OEDEMA PERIPHERAL
     Dosage: UNK, UNK
     Dates: start: 20100705, end: 20100728
  16. MEGESTROL [Concomitant]
     Indication: DECREASED APPETITE
     Dosage: UNK, UNK
     Dates: start: 20100710, end: 20100731
  17. GLYCERINE BORAX [Concomitant]
     Indication: MUCOSAL INFLAMMATION
     Dates: start: 20100801

REACTIONS (3)
  - NEUTROPENIA [None]
  - SEPSIS [None]
  - THROMBOCYTOPENIA [None]
